FAERS Safety Report 18545403 (Version 3)
Quarter: 2021Q1

REPORT INFORMATION
  Report Type: Report from Study
  Country: GB (occurrence: GB)
  Receive Date: 20201125
  Receipt Date: 20210208
  Transmission Date: 20210419
  Serious: Yes (Other)
  Sender: FDA-Public Use
  Company Number: NVSC2020GB310596

PATIENT
  Sex: Female

DRUGS (1)
  1. OMNITROPE [Suspect]
     Active Substance: SOMATROPIN
     Indication: PRODUCT USED FOR UNKNOWN INDICATION
     Dosage: 0.9 MG, QD
     Route: 065

REACTIONS (5)
  - Product availability issue [Unknown]
  - Brain neoplasm [Unknown]
  - Memory impairment [Unknown]
  - Product dose omission issue [Unknown]
  - Fatigue [Unknown]
